FAERS Safety Report 14022927 (Version 1)
Quarter: 2017Q3

REPORT INFORMATION
  Report Type: Spontaneous
  Country: GB (occurrence: GB)
  Receive Date: 20170929
  Receipt Date: 20170929
  Transmission Date: 20171128
  Serious: Yes (Disabling, Other)
  Sender: FDA-Public Use
  Company Number: GB-MYLANLABS-2017M1059279

PATIENT
  Age: 33 Year
  Sex: Female
  Weight: 58 kg

DRUGS (3)
  1. COCODAMOL [Concomitant]
     Active Substance: ACETAMINOPHEN\CODEINE PHOSPHATE
     Dosage: TAKE 2 UP TO FOUR TIMES/DAY.
     Dates: start: 20170809, end: 20170816
  2. CITALOPRAM [Concomitant]
     Active Substance: CITALOPRAM HYDROBROMIDE
     Dosage: TAKE 2 FOR 7 DAYS THEN 1 FOR 7 DAYS THEN STOP.
     Dates: start: 20170515, end: 20170828
  3. MIRTAZAPINE. [Suspect]
     Active Substance: MIRTAZAPINE
     Indication: PRODUCT USED FOR UNKNOWN INDICATION
     Dates: start: 20170905

REACTIONS (5)
  - Aggression [Unknown]
  - Anger [Recovering/Resolving]
  - Nausea [Unknown]
  - Night sweats [Unknown]
  - Dizziness [Unknown]

NARRATIVE: CASE EVENT DATE: 20170905
